FAERS Safety Report 5265850-0 (Version None)
Quarter: 2007Q1

REPORT INFORMATION
  Report Type: 
  Country: None (occurrence: None)
  Receive Date: 20070312
  Receipt Date: 20070312
  Transmission Date: 20070707
  Serious: Yes (Hospitalization)
  Sender: FDA-Public Use
  Company Number: None

PATIENT
  Age: 23 Year
  Sex: Male
  Weight: 124.7392 kg

DRUGS (7)
  1. PROPRANOLOL [Suspect]
     Indication: ANXIETY
     Dosage: 20MG  BID  PO
     Route: 048
     Dates: start: 20060821, end: 20060821
  2. PROPRANOLOL [Suspect]
     Indication: PANIC ATTACK
     Dosage: 20MG  BID  PO
     Route: 048
     Dates: start: 20060821, end: 20060821
  3. PROZAC [Concomitant]
  4. XANAX [Concomitant]
  5. AMBIEN [Concomitant]
  6. ALBUTEROL [Concomitant]
  7. ADVAIR DISKUS 100/50 [Concomitant]

REACTIONS (4)
  - ASTHMA [None]
  - BRONCHOSPASM [None]
  - CONDITION AGGRAVATED [None]
  - NO THERAPEUTIC RESPONSE [None]
